FAERS Safety Report 14206296 (Version 4)
Quarter: 2018Q1

REPORT INFORMATION
  Report Type: Report from Study
  Country: US (occurrence: US)
  Receive Date: 20171120
  Receipt Date: 20180321
  Transmission Date: 20180508
  Serious: Yes (Hospitalization)
  Sender: FDA-Public Use
  Company Number: US-BRISTOL-MYERS SQUIBB COMPANY-BMS-2017-102142

PATIENT
  Age: 10 Year
  Sex: Female

DRUGS (9)
  1. ABATACEPT [Suspect]
     Active Substance: ABATACEPT
     Indication: RHEUMATOID ARTHRITIS
     Dosage: 500 MG, Q4WK
     Route: 042
     Dates: start: 20150415
  2. METHOTREXATE. [Concomitant]
     Active Substance: METHOTREXATE
     Indication: JUVENILE IDIOPATHIC ARTHRITIS
     Dosage: 15 MG, QWK
     Route: 048
     Dates: start: 20160615
  3. TRAMADOL. [Concomitant]
     Active Substance: TRAMADOL
     Indication: PAIN
     Dosage: 100 MG, UNK
     Route: 048
     Dates: start: 20170907
  4. NAPROXEN. [Concomitant]
     Active Substance: NAPROXEN
     Indication: INFLAMMATION
     Dosage: 500 MG, UNK
     Route: 048
     Dates: start: 20120329
  5. FOLIC ACID. [Concomitant]
     Active Substance: FOLIC ACID
     Indication: JUVENILE IDIOPATHIC ARTHRITIS
     Dosage: 1 MG, UNK
     Route: 048
     Dates: start: 20120615
  6. CELECOXIB. [Concomitant]
     Active Substance: CELECOXIB
     Indication: JUVENILE IDIOPATHIC ARTHRITIS
     Dosage: 200 MG, UNK
     Route: 048
     Dates: start: 20151219
  7. DIPHENHYDRAMINE. [Concomitant]
     Active Substance: DIPHENHYDRAMINE
     Indication: JUVENILE IDIOPATHIC ARTHRITIS
     Dosage: UNK, 1 DOSE
     Route: 048
     Dates: start: 20130915
  8. PREDNISONE. [Concomitant]
     Active Substance: PREDNISONE
     Indication: JUVENILE IDIOPATHIC ARTHRITIS
     Dosage: 20 MG, UNK
     Route: 048
     Dates: start: 20170904
  9. IBUPROFEN. [Concomitant]
     Active Substance: IBUPROFEN
     Indication: INFLAMMATION
     Dosage: 325 MG, UNK
     Route: 048
     Dates: start: 20120315

REACTIONS (5)
  - Hypermobility syndrome [Not Recovered/Not Resolved]
  - Repetitive strain injury [Not Recovered/Not Resolved]
  - Drug ineffective [Unknown]
  - Drug administered to patient of inappropriate age [Unknown]
  - Arthralgia [Not Recovered/Not Resolved]

NARRATIVE: CASE EVENT DATE: 20170915
